FAERS Safety Report 16298669 (Version 1)
Quarter: 2019Q2

REPORT INFORMATION
  Report Type: Report from Study
  Country: None (occurrence: CA)
  Receive Date: 20190510
  Receipt Date: 20190510
  Transmission Date: 20190711
  Serious: Yes (Death)
  Sender: FDA-Public Use
  Company Number: CA-ABBVIE-19S-028-2777632-00

PATIENT
  Age: 84 Year
  Sex: Male

DRUGS (1)
  1. LUPRON DEPOT [Suspect]
     Active Substance: LEUPROLIDE ACETATE
     Indication: PROSTATE CANCER
     Dosage: DRUG WAS ONGOING UNTIL PATIENT^S DEATH. THE DATE OF LAST ADMINISTRATION WAS ON 25 JAN 2019
     Route: 030
     Dates: start: 20160925

REACTIONS (1)
  - Death [Fatal]

NARRATIVE: CASE EVENT DATE: 20190219
